FAERS Safety Report 16877493 (Version 1)
Quarter: 2019Q4

REPORT INFORMATION
  Report Type: Spontaneous
  Country: DK (occurrence: DK)
  Receive Date: 20191002
  Receipt Date: 20191002
  Transmission Date: 20200122
  Serious: Yes (Hospitalization)
  Sender: FDA-Public Use
  Company Number: DK-ASTRAZENECA-2019SF37043

PATIENT
  Age: 62 Year
  Sex: Female

DRUGS (4)
  1. BRILIQUE [Suspect]
     Active Substance: TICAGRELOR
     Indication: THROMBOSIS PROPHYLAXIS
     Route: 048
     Dates: start: 20181015, end: 20190823
  2. PARACETAMOL [Concomitant]
     Active Substance: ACETAMINOPHEN
     Indication: PAIN
     Dosage: 1 G WHEN NEEDED MAXIMUM 4 TIMES DAILY.
     Route: 048
     Dates: start: 20190805, end: 20190911
  3. HJERTEMAGNYL [Concomitant]
     Indication: THROMBOSIS PROPHYLAXIS
     Route: 048
     Dates: start: 20181015
  4. ATORVASTATIN [Concomitant]
     Active Substance: ATORVASTATIN
     Indication: CARDIOVASCULAR EVENT PROPHYLAXIS
     Route: 048
     Dates: start: 20180307, end: 20190827

REACTIONS (1)
  - Hepatitis toxic [Recovering/Resolving]

NARRATIVE: CASE EVENT DATE: 20190823
